FAERS Safety Report 12736125 (Version 7)
Quarter: 2020Q4

REPORT INFORMATION
  Report Type: Spontaneous
  Country: US (occurrence: US)
  Receive Date: 20160912
  Receipt Date: 20201223
  Transmission Date: 20210113
  Serious: No
  Sender: FDA-Public Use
  Company Number: US-PFIZER INC-2016421350

PATIENT
  Age: 72 Year
  Sex: Male

DRUGS (7)
  1. XELJANZ [Suspect]
     Active Substance: TOFACITINIB CITRATE
     Dosage: 5 MG
  2. XELJANZ [Suspect]
     Active Substance: TOFACITINIB CITRATE
     Dosage: 10 MG
     Dates: start: 20160309
  3. HYDROXYCHLOROQUINE [Suspect]
     Active Substance: HYDROXYCHLOROQUINE
     Indication: PAIN
     Dosage: 200 MG
     Dates: start: 20150506
  4. DULOXETINE. [Suspect]
     Active Substance: DULOXETINE
     Indication: PAIN
     Dosage: 30 MG
     Dates: start: 20150522
  5. VITAMIN D2 [Suspect]
     Active Substance: ERGOCALCIFEROL
     Indication: BONE DISORDER
     Dosage: 50000 IU, WEEKLY
     Dates: start: 20160709
  6. ALENDRONATE [Suspect]
     Active Substance: ALENDRONATE SODIUM
     Indication: BONE DISORDER
     Dosage: 70 MG
     Dates: start: 20160409
  7. XELJANZ [Suspect]
     Active Substance: TOFACITINIB CITRATE
     Indication: PAIN
     Dosage: 5 MG

REACTIONS (4)
  - Therapeutic product effect incomplete [Unknown]
  - Impaired healing [Recovered/Resolved]
  - Hypoacusis [Unknown]
  - Animal scratch [Recovered/Resolved]

NARRATIVE: CASE EVENT DATE: 20160824
